FAERS Safety Report 9193197 (Version 2)
Quarter: 2013Q2

REPORT INFORMATION
  Report Type: Report from Study
  Country: US (occurrence: US)
  Receive Date: 20130327
  Receipt Date: 20130405
  Transmission Date: 20140414
  Serious: Yes (Life-Threatening, Hospitalization)
  Sender: FDA-Public Use
  Company Number: US-ACTELION-A-NJ2013-80972

PATIENT
  Age: 25 Year
  Sex: Male

DRUGS (5)
  1. DIGOXIN [Concomitant]
  2. ALDACTONE [Concomitant]
  3. POTASSIUM [Concomitant]
  4. TRACLEER [Suspect]
     Indication: PULMONARY ARTERIAL HYPERTENSION
     Dosage: UNK
     Route: 048
  5. COUMADIN [Concomitant]

REACTIONS (4)
  - Convulsion [Recovered/Resolved]
  - Thrombosis [Recovered/Resolved]
  - Device malfunction [Recovered/Resolved]
  - Blood potassium decreased [Recovered/Resolved]
